FAERS Safety Report 4853213-9 (Version None)
Quarter: 2005Q4

REPORT INFORMATION
  Report Type: 
  Country: None (occurrence: None)
  Receive Date: 20051214
  Receipt Date: 20051114
  Transmission Date: 20060501
  Serious: Yes (Hospitalization)
  Sender: FDA-Public Use
  Company Number: FR-NOVOPROD-248675

PATIENT
  Age: 78 Year
  Sex: Male
  Weight: 69 kg

DRUGS (6)
  1. LEVEMIR [Suspect]
     Indication: DIABETES MELLITUS INSULIN-DEPENDENT
     Dosage: 20 IU, QD
     Route: 058
     Dates: start: 20050928, end: 20051109
  2. AMLOR [Concomitant]
     Dosage: 5 MG, UNK
     Route: 048
     Dates: start: 19950101
  3. PROSCAR [Concomitant]
     Dosage: 1 UNK, QD
     Route: 048
     Dates: start: 20020101
  4. DIAMICRON [Concomitant]
     Dosage: 120 MG, QD
     Route: 048
     Dates: start: 19940101
  5. CRESTOR [Concomitant]
     Dosage: 10 MG, QD
     Route: 048
     Dates: start: 20020101
  6. ATENOLOL [Concomitant]
     Dosage: 25 MG, QD
     Route: 048
     Dates: start: 19950101

REACTIONS (4)
  - INJECTION SITE REACTION [None]
  - PRURIGO [None]
  - RASH ERYTHEMATOUS [None]
  - RASH PAPULAR [None]
